FAERS Safety Report 5932872-3 (Version None)
Quarter: 2008Q4

REPORT INFORMATION
  Report Type: 
  Country: None (occurrence: None)
  Receive Date: 20081027
  Receipt Date: 20081027
  Transmission Date: 20090506
  Serious: Yes (Other)
  Sender: FDA-Public Use
  Company Number: None

PATIENT
  Age: 37 Year
  Sex: Female
  Weight: 88.905 kg

DRUGS (2)
  1. CHANTIX [Suspect]
     Dates: start: 20080101, end: 20080110
  2. CHANTIX [Suspect]
     Dates: start: 20080301, end: 20080303

REACTIONS (2)
  - DEPRESSION [None]
  - PANIC ATTACK [None]
